FAERS Safety Report 5571805-9 (Version None)
Quarter: 2007Q4

REPORT INFORMATION
  Report Type: 
  Country: None (occurrence: None)
  Receive Date: 20071221
  Receipt Date: 20071214
  Transmission Date: 20080405
  Serious: Yes (Hospitalization)
  Sender: FDA-Public Use
  Company Number: B0500422A

PATIENT
  Age: 35 Year
  Sex: Female

DRUGS (7)
  1. ZOPHREN [Suspect]
     Dosage: 8MG PER DAY
     Route: 042
     Dates: start: 20071120, end: 20071120
  2. CYCLOPHOSPHAMIDE [Suspect]
     Dosage: 500MG PER DAY
     Route: 042
     Dates: start: 20071120, end: 20071120
  3. UROMITEXAN [Suspect]
     Dosage: 600MG PER DAY
     Route: 042
     Dates: start: 20071120, end: 20071120
  4. UROMITEXAN [Suspect]
     Dosage: 600MG PER DAY
     Route: 048
     Dates: start: 20071120
  5. XANAX [Concomitant]
     Route: 048
     Dates: start: 20071120, end: 20071120
  6. RAMIPRIL [Concomitant]
     Route: 048
  7. CORTANCYL [Concomitant]
     Dosage: 40MG PER DAY
     Route: 048

REACTIONS (4)
  - DYSPNOEA [None]
  - HYPERTHERMIA [None]
  - PALATAL OEDEMA [None]
  - RASH [None]
